FAERS Safety Report 5553948-9 (Version None)
Quarter: 2007Q4

REPORT INFORMATION
  Report Type: 
  Country: None (occurrence: None)
  Receive Date: 20071212
  Receipt Date: 20071212
  Transmission Date: 20080405
  Serious: Yes (Other)
  Sender: FDA-Public Use
  Company Number: None

PATIENT
  Sex: Female

DRUGS (3)
  1. AZITHROMAX (GENERICS ONLY) [Suspect]
     Indication: BRONCHITIS
     Dosage: 250MG 2 X 1 DOSE THEN ONE QD ORAL
     Route: 048
  2. AZITHROMAX (GENERICS ONLY) [Suspect]
     Indication: SINUSITIS
     Dosage: 250MG 2 X 1 DOSE THEN ONE QD ORAL
     Route: 048
  3. AZITHROMAX (GENERICS ONLY) [Suspect]
     Indication: UPPER RESPIRATORY TRACT INFECTION
     Dosage: 250MG 2 X 1 DOSE THEN ONE QD ORAL
     Route: 048

REACTIONS (2)
  - PHARMACEUTICAL PRODUCT COMPLAINT [None]
  - VOMITING [None]
